FAERS Safety Report 9700202 (Version 1)
Quarter: 2013Q4

REPORT INFORMATION
  Report Type: Spontaneous
  Country: GB (occurrence: GB)
  Receive Date: 20131121
  Receipt Date: 20131121
  Transmission Date: 20140711
  Serious: Yes (Other)
  Sender: FDA-Public Use
  Company Number: GB-AMGEN-GBRSP2013081173

PATIENT
  Sex: Female

DRUGS (1)
  1. ARANESP [Suspect]
     Indication: PRODUCT USED FOR UNKNOWN INDICATION
     Dosage: 60 MUG, Q2WK
     Route: 065

REACTIONS (5)
  - Renal impairment [Unknown]
  - Pericardial effusion [Unknown]
  - Fatigue [Unknown]
  - Malaise [Unknown]
  - Diarrhoea [Unknown]
